FAERS Safety Report 6041806-5 (Version None)
Quarter: 2009Q1

REPORT INFORMATION
  Report Type: 
  Country: None (occurrence: None)
  Receive Date: 20090116
  Receipt Date: 20090113
  Transmission Date: 20090719
  Serious: Yes (Life-Threatening, Hospitalization, Other)
  Sender: FDA-Public Use
  Company Number: CZ-ASTRAZENECA-2009SE00314

PATIENT
  Age: 23543 Day
  Sex: Male

DRUGS (3)
  1. MARCAINE [Suspect]
     Indication: LOCAL ANAESTHESIA
     Route: 058
     Dates: start: 20090103, end: 20090103
  2. AMOKSIKLAV [Concomitant]
     Indication: PROPHYLAXIS
     Dosage: 1.2 G
     Route: 042
     Dates: start: 20090103, end: 20090103
  3. DEXAMED [Concomitant]
     Dosage: 16 MG
     Route: 042
     Dates: start: 20090103, end: 20090103

REACTIONS (4)
  - ANAPHYLACTIC SHOCK [None]
  - ARRHYTHMIA [None]
  - CARDIAC ARREST [None]
  - LOSS OF CONSCIOUSNESS [None]
